FAERS Safety Report 7397144-1 (Version None)
Quarter: 2011Q2

REPORT INFORMATION
  Report Type: 
  Country: None (occurrence: None)
  Receive Date: 20110406
  Receipt Date: 20110329
  Transmission Date: 20111010
  Serious: No
  Sender: FDA-Public Use
  Company Number: B0705925A

PATIENT
  Sex: Female

DRUGS (7)
  1. FLOMAX [Concomitant]
     Route: 048
  2. CEFACLOR [Concomitant]
     Route: 048
  3. VALTREX [Suspect]
     Indication: HERPES SIMPLEX
     Dosage: 500MG PER DAY
     Route: 048
     Dates: start: 20110221
  4. DEPAS [Concomitant]
     Route: 048
  5. NIPOLAZIN [Concomitant]
     Route: 048
  6. TALION [Concomitant]
     Route: 048
  7. LIPITOR [Concomitant]
     Route: 048

REACTIONS (5)
  - PYREXIA [None]
  - OVERDOSE [None]
  - DISCOMFORT [None]
  - EYELID OEDEMA [None]
  - PALPITATIONS [None]
